FAERS Safety Report 17408826 (Version 1)
Quarter: 2020Q1

REPORT INFORMATION
  Report Type: Spontaneous
  Country: US (occurrence: US)
  Receive Date: 20200212
  Receipt Date: 20200212
  Transmission Date: 20200409
  Serious: Yes (Other)
  Sender: FDA-Public Use
  Company Number: US-FRESENIUS KABI-FK202001405

PATIENT
  Age: 11 Year
  Sex: Male

DRUGS (6)
  1. VANCOMYCIN (MANUFACTURER UNKNOWN) [Suspect]
     Active Substance: VANCOMYCIN
     Indication: CONJUNCTIVITIS BACTERIAL
     Route: 042
  2. AZITHROMYCIN (MANUFACTURER UNKNOWN) [Suspect]
     Active Substance: AZITHROMYCIN ANHYDROUS
     Indication: PYREXIA
     Route: 065
  3. ACYCLOVIR SODIUM (MANUFACTURER UNKNOWN) [Suspect]
     Active Substance: ACYCLOVIR SODIUM
     Indication: EVIDENCE BASED TREATMENT
     Route: 042
  4. FLUCONAZOLE. [Suspect]
     Active Substance: FLUCONAZOLE
     Indication: EVIDENCE BASED TREATMENT
     Route: 042
  5. NAFCILLIN [Suspect]
     Active Substance: NAFCILLIN SODIUM
     Indication: EVIDENCE BASED TREATMENT
     Route: 042
  6. IBUPROFEN. [Suspect]
     Active Substance: IBUPROFEN
     Indication: PYREXIA
     Route: 065

REACTIONS (1)
  - Linear IgA disease [Recovering/Resolving]
